FAERS Safety Report 4966280-9 (Version None)
Quarter: 2006Q2

REPORT INFORMATION
  Report Type: 
  Country: None (occurrence: None)
  Receive Date: 20060407
  Receipt Date: 20051006
  Transmission Date: 20061013
  Serious: Yes (Hospitalization, Disabling)
  Sender: FDA-Public Use
  Company Number: US-MERCK-0510USA05636

PATIENT
  Age: 61 Year
  Sex: Male
  Weight: 91 kg

DRUGS (2)
  1. VIOXX [Suspect]
     Indication: PAIN MANAGEMENT
     Route: 048
     Dates: start: 20010817, end: 20011129
  2. VIOXX [Suspect]
     Indication: ARTHRITIS
     Route: 048
     Dates: start: 20010817, end: 20011129

REACTIONS (10)
  - ATRIOVENTRICULAR BLOCK [None]
  - BACK INJURY [None]
  - CORONARY ARTERY DISEASE [None]
  - DYSPNOEA [None]
  - FATIGUE [None]
  - JOINT INJURY [None]
  - JOINT SWELLING [None]
  - MITRAL VALVE INCOMPETENCE [None]
  - MYOCARDIAL INFARCTION [None]
  - ROTATOR CUFF SYNDROME [None]
